FAERS Safety Report 20223785 (Version 1)
Quarter: 2021Q4

REPORT INFORMATION
  Report Type: Spontaneous
  Country: US (occurrence: None)
  Receive Date: 20211223
  Receipt Date: 20211223
  Transmission Date: 20220303
  Serious: Yes (Death)
  Sender: FDA-Public Use
  Company Number: None

PATIENT
  Age: 54 Year
  Sex: Male
  Weight: 135.45 kg

DRUGS (1)
  1. REGEN-COV [Suspect]
     Active Substance: CASIRIVIMAB\IMDEVIMAB
     Indication: COVID-19
     Dosage: OTHER FREQUENCY : ONCE;?
     Route: 058
     Dates: start: 20211217, end: 20211217

REACTIONS (4)
  - General physical health deterioration [None]
  - COVID-19 pneumonia [None]
  - Pulmonary embolism [None]
  - Circulatory collapse [None]

NARRATIVE: CASE EVENT DATE: 20211218
